FAERS Safety Report 25755193 (Version 2)
Quarter: 2025Q4

REPORT INFORMATION
  Report Type: Spontaneous
  Country: US (occurrence: US)
  Receive Date: 20250903
  Receipt Date: 20251117
  Transmission Date: 20260117
  Serious: No
  Sender: ALEMBIC
  Company Number: US-ALEMBIC PHARMACUETICALS LIMITED-2025SCAL001118

PATIENT

DRUGS (1)
  1. TIMOLOL MALEATE [Suspect]
     Active Substance: TIMOLOL MALEATE
     Indication: Open angle glaucoma
     Dosage: 1 DROP IN EACH EYE IN THE MORNING
     Route: 047
     Dates: start: 202101

REACTIONS (2)
  - Product use issue [Unknown]
  - Product container issue [Unknown]
